FAERS Safety Report 22261617 (Version 1)
Quarter: 2023Q2

REPORT INFORMATION
  Report Type: Spontaneous
  Country: US (occurrence: US)
  Receive Date: 20230427
  Receipt Date: 20230427
  Transmission Date: 20230721
  Serious: No
  Sender: FDA-Public Use
  Company Number: US-BAYER-2023A058127

PATIENT
  Age: 75 Year
  Sex: Male

DRUGS (1)
  1. MIRALAX [Suspect]
     Active Substance: POLYETHYLENE GLYCOL 3350
     Dosage: 2 DF
     Route: 048
     Dates: start: 20230423

REACTIONS (2)
  - Drug ineffective [Recovering/Resolving]
  - Extra dose administered [Recovering/Resolving]

NARRATIVE: CASE EVENT DATE: 20230423
